FAERS Safety Report 10247716 (Version 1)
Quarter: 2014Q2

REPORT INFORMATION
  Report Type: Report from Study
  Country: GB (occurrence: GB)
  Receive Date: 20140619
  Receipt Date: 20140619
  Transmission Date: 20141212
  Serious: Yes (Other)
  Sender: FDA-Public Use
  Company Number: PHHY2014GB074789

PATIENT
  Sex: Female
  Weight: 2.55 kg

DRUGS (5)
  1. SOMATROPIN [Suspect]
     Dosage: MATERNAL DOSE: AT A DOSE OF 0.6 MG DAILY
     Route: 064
  2. METHYLDOPA [Suspect]
     Route: 064
  3. HYDROCORTISONE [Suspect]
     Route: 064
  4. LEVOTHYROXINE [Suspect]
     Route: 064
  5. PENICILLIN NOS [Suspect]
     Route: 064

REACTIONS (2)
  - Low birth weight baby [Unknown]
  - Foetal exposure during pregnancy [Unknown]
